FAERS Safety Report 9187749 (Version 2)
Quarter: 2013Q3

REPORT INFORMATION
  Report Type: Report from Study
  Country: BE (occurrence: BE)
  Receive Date: 20130325
  Receipt Date: 20130906
  Transmission Date: 20140515
  Serious: Yes (Other)
  Sender: FDA-Public Use
  Company Number: BE-SHIRE-ALL1-2013-01617

PATIENT
  Age: 9 Year
  Sex: Male
  Weight: 25.1 kg

DRUGS (2)
  1. 489 (LISDEXAMFETAMINE DIMESYLATE) [Suspect]
     Indication: ATTENTION DEFICIT/HYPERACTIVITY DISORDER
     Dosage: 50 MG, 1X/DAY:QD
     Route: 048
     Dates: start: 20120919, end: 20130312
  2. 489 (LISDEXAMFETAMINE DIMESYLATE) [Suspect]
     Dosage: UNK UNK, UNKNOWN
     Route: 048
     Dates: start: 20120829

REACTIONS (1)
  - Syncope [Recovered/Resolved]
